FAERS Safety Report 25192013 (Version 1)
Quarter: 2025Q2

REPORT INFORMATION
  Report Type: Spontaneous
  Country: CN (occurrence: CN)
  Receive Date: 20250414
  Receipt Date: 20250414
  Transmission Date: 20250717
  Serious: Yes (Other)
  Sender: AMGEN
  Company Number: CN-AMGEN-CHNSP2025069879

PATIENT
  Age: 50 Year
  Sex: Female
  Weight: 48.6 kg

DRUGS (3)
  1. CARFILZOMIB [Suspect]
     Active Substance: CARFILZOMIB
     Indication: Plasma cell myeloma
     Dosage: 40 MILLIGRAM, 2 TIMES/WK
     Route: 040
     Dates: start: 20250318, end: 20250402
  2. STERILE WATER [Concomitant]
     Active Substance: WATER
     Route: 040
     Dates: start: 20250318, end: 20250402
  3. DEXTROSE [Concomitant]
     Active Substance: DEXTROSE MONOHYDRATE
     Route: 040
     Dates: start: 20250318, end: 20250402

REACTIONS (1)
  - Agranulocytosis [Recovering/Resolving]

NARRATIVE: CASE EVENT DATE: 20250328
